FAERS Safety Report 8850718 (Version 1)
Quarter: 2012Q4

REPORT INFORMATION
  Report Type: 
  Country: US (occurrence: US)
  Receive Date: 20121019
  Receipt Date: 20121019
  Transmission Date: 20130627
  Serious: Yes (Other)
  Sender: FDA-Public Use
  Company Number: US-BRISTOL-MYERS SQUIBB COMPANY-17030537

PATIENT
  Age: 20 Year
  Sex: Male
  Weight: 82 kg

DRUGS (1)
  1. KENALOG-40 INJ [Suspect]
     Indication: PAIN
     Dosage: 3 injections on 27-Aug12
     Dates: start: 20120803

REACTIONS (4)
  - Adrenocortical insufficiency acute [Unknown]
  - Gastrooesophageal reflux disease [Unknown]
  - Muscle atrophy [Unknown]
  - Weight decreased [Unknown]
